FAERS Safety Report 4498876-5 (Version None)
Quarter: 2004Q4

REPORT INFORMATION
  Report Type: 
  Country: None (occurrence: None)
  Receive Date: 20041108
  Receipt Date: 20041020
  Transmission Date: 20050328
  Serious: Yes (Hospitalization)
  Sender: FDA-Public Use
  Company Number: A01200405331

PATIENT
  Sex: Male

DRUGS (1)
  1. ELIGARD - (LEUPROLIDE ACETATE) - SUSPENSION - 22.5 MG [Suspect]
     Dosage: 22.5 MG Q3M

REACTIONS (6)
  - BLOOD TESTOSTERONE INCREASED [None]
  - HAEMORRHAGE URINARY TRACT [None]
  - PROSTATE CANCER [None]
  - PROSTATIC SPECIFIC ANTIGEN INCREASED [None]
  - THERAPEUTIC RESPONSE DECREASED [None]
  - URETHRAL HAEMORRHAGE [None]
